FAERS Safety Report 7572936-4 (Version None)
Quarter: 2011Q2

REPORT INFORMATION
  Report Type: 
  Country: None (occurrence: None)
  Receive Date: 20110620
  Receipt Date: 20110609
  Transmission Date: 20111010
  Serious: Yes (Other)
  Sender: FDA-Public Use
  Company Number: LEO-2011-00509

PATIENT
  Sex: Male
  Weight: 88 kg

DRUGS (1)
  1. INNOHEP [Suspect]
     Indication: THROMBOSIS PROPHYLAXIS
     Dosage: 4500 IU,SUBCUTANEOUS
     Route: 058

REACTIONS (2)
  - PAIN [None]
  - DEEP VEIN THROMBOSIS [None]
